FAERS Safety Report 15736557 (Version 1)
Quarter: 2018Q4

REPORT INFORMATION
  Report Type: Spontaneous
  Country: US (occurrence: US)
  Receive Date: 20181218
  Receipt Date: 20181218
  Transmission Date: 20190205
  Serious: No
  Sender: FDA-Public Use
  Company Number: US-AKRON, INC.-2060338

PATIENT
  Age: 67 Year
  Sex: Female
  Weight: 52 kg

DRUGS (1)
  1. DORZOLAMIDE HCL TIMOLOL MALEATE SOLUTION [Suspect]
     Active Substance: DORZOLAMIDE HYDROCHLORIDE\TIMOLOL MALEATE
     Route: 047

REACTIONS (8)
  - Headache [Unknown]
  - Oropharyngeal pain [Recovering/Resolving]
  - Lacrimation increased [Unknown]
  - Vision blurred [Unknown]
  - Aphonia [Recovered/Resolved]
  - Dyspnoea [Unknown]
  - Cough [Recovering/Resolving]
  - Nasal congestion [Unknown]

NARRATIVE: CASE EVENT DATE: 201804
